FAERS Safety Report 10653901 (Version 1)
Quarter: 2014Q4

REPORT INFORMATION
  Report Type: Spontaneous
  Country: US (occurrence: None)
  Receive Date: 20141205
  Receipt Date: 20141205
  Transmission Date: 20150529
  Serious: Yes (Hospitalization, Other)
  Sender: FDA-Public Use
  Company Number: 163-POMAL-14091575

PATIENT
  Age: 65 Year
  Sex: Male
  Weight: 89.4 kg

DRUGS (2)
  1. POMALYST [Suspect]
     Active Substance: POMALIDOMIDE
     Indication: PLASMA CELL MYELOMA
     Dosage: 21 IN 21 D
     Route: 048
     Dates: start: 20140726
  2. DEXAMETHASONE. [Concomitant]
     Active Substance: DEXAMETHASONE

REACTIONS (5)
  - Staphylococcal infection [None]
  - Platelet count decreased [None]
  - Bacteraemia [None]
  - Neutropenia [None]
  - Pyrexia [None]

NARRATIVE: CASE EVENT DATE: 20140821
